FAERS Safety Report 7400431-1 (Version None)
Quarter: 2011Q2

REPORT INFORMATION
  Report Type: 
  Country: None (occurrence: None)
  Receive Date: 20110407
  Receipt Date: 20110329
  Transmission Date: 20111010
  Serious: Yes (Hospitalization)
  Sender: FDA-Public Use
  Company Number: BR-ASTRAZENECA-2011SE18369

PATIENT
  Age: 77 Year
  Sex: Male

DRUGS (4)
  1. OMEPRAZOLE [Suspect]
     Route: 048
     Dates: start: 20070101
  2. BETOPITC [Suspect]
     Indication: GLAUCOMA
     Dates: start: 20060101, end: 20100101
  3. RIVOTRIL [Suspect]
     Indication: DEPRESSION
     Route: 048
     Dates: start: 20070101
  4. SYMBICORT [Suspect]
     Indication: ASTHMA
     Dosage: 320/9 UG, UNK
     Route: 055
     Dates: start: 20030101, end: 20110329

REACTIONS (16)
  - UPPER LIMB FRACTURE [None]
  - MENINGITIS [None]
  - HYPERTENSION [None]
  - HYPERSENSITIVITY [None]
  - ASTHMA [None]
  - GLAUCOMA [None]
  - SEDATION [None]
  - PNEUMONIA [None]
  - RIB FRACTURE [None]
  - INSOMNIA [None]
  - DYSPNOEA [None]
  - CONVULSION [None]
  - HYPERTONIC BLADDER [None]
  - CHRONIC OBSTRUCTIVE PULMONARY DISEASE [None]
  - CATARACT [None]
  - DEPRESSION [None]
